FAERS Safety Report 24026697 (Version 1)
Quarter: 2024Q2

REPORT INFORMATION
  Report Type: Spontaneous
  Country: AU (occurrence: AU)
  Receive Date: 20240628
  Receipt Date: 20240628
  Transmission Date: 20240716
  Serious: Yes (Other)
  Sender: FDA-Public Use
  Company Number: AU-TEVA-VS-3211501

PATIENT
  Sex: Male

DRUGS (4)
  1. QUETIAPINE FUMARATE [Suspect]
     Active Substance: QUETIAPINE FUMARATE
     Indication: Product used for unknown indication
     Route: 065
  2. FISH OIL [Concomitant]
     Active Substance: FISH OIL
  3. MAGNESIUM [Concomitant]
     Active Substance: MAGNESIUM
  4. VITAMIN C [Concomitant]
     Active Substance: ASCORBIC ACID

REACTIONS (10)
  - Suicidal ideation [Unknown]
  - Intentional product misuse [Unknown]
  - Emotional poverty [Unknown]
  - Decreased appetite [Unknown]
  - Condition aggravated [Unknown]
  - Cognitive disorder [Unknown]
  - Apathy [Unknown]
  - Anxiety [Unknown]
  - Anhedonia [Unknown]
  - Akathisia [Unknown]
